FAERS Safety Report 23284834 (Version 1)
Quarter: 2023Q4

REPORT INFORMATION
  Report Type: Report from Study
  Country: CN (occurrence: CN)
  Receive Date: 20231211
  Receipt Date: 20231211
  Transmission Date: 20240109
  Serious: Yes (Hospitalization)
  Sender: FDA-Public Use
  Company Number: CN-Eisai-EC-2023-154767

PATIENT
  Age: 47 Year
  Sex: Male
  Weight: 71 kg

DRUGS (6)
  1. LENVATINIB [Suspect]
     Active Substance: LENVATINIB
     Indication: Hepatocellular carcinoma
     Route: 048
     Dates: start: 20211126, end: 20211217
  2. TORIPALIMAB [Suspect]
     Active Substance: TORIPALIMAB
     Indication: Hepatocellular carcinoma
     Dosage: JS001/PLACEBO
     Route: 042
     Dates: start: 20211126, end: 20220107
  3. ENTECAVIR [Concomitant]
     Active Substance: ENTECAVIR
     Indication: Hepatitis B
     Dosage: DOSE AND FREQUENCY UNKNOWN
     Route: 048
     Dates: start: 201906
  4. COMPOUND GLYCYRRHIZIN [Concomitant]
     Indication: Liver disorder
     Dosage: DOSE AND FREQUENCY UNKNOWN
     Dates: start: 20211217
  5. ADENOSINE METHIONINE [Concomitant]
     Indication: Liver disorder
     Dosage: DOSE AND FREQUENCY UNKNOWN
     Route: 048
     Dates: start: 20211217
  6. PHOSPHOLIPID [Concomitant]
     Active Substance: PHOSPHOLIPID
     Indication: Liver disorder
     Dosage: DOSE AND FREQUENCY UNKNOWN

REACTIONS (1)
  - Upper gastrointestinal haemorrhage [Recovered/Resolved]

NARRATIVE: CASE EVENT DATE: 20220109
